FAERS Safety Report 16820698 (Version 1)
Quarter: 2019Q3

REPORT INFORMATION
  Report Type: Spontaneous
  Country: US (occurrence: US)
  Receive Date: 20190918
  Receipt Date: 20190918
  Transmission Date: 20191005
  Serious: No
  Sender: FDA-Public Use
  Company Number: US-BIOGEN-2019BI00784750

PATIENT
  Sex: Female

DRUGS (1)
  1. TYSABRI [Suspect]
     Active Substance: NATALIZUMAB
     Indication: MULTIPLE SCLEROSIS
     Route: 042
     Dates: start: 20110920

REACTIONS (5)
  - Fall [Recovered/Resolved]
  - Product dose omission [Unknown]
  - Hypotonia [Unknown]
  - Hypoaesthesia [Unknown]
  - Tremor [Unknown]
